FAERS Safety Report 6845576-X (Version None)
Quarter: 2010Q3

REPORT INFORMATION
  Report Type: 
  Country: None (occurrence: None)
  Receive Date: 20100715
  Receipt Date: 20070821
  Transmission Date: 20110219
  Serious: No
  Sender: FDA-Public Use
  Company Number: US-PFIZER INC-2007071152

PATIENT
  Sex: Female
  Weight: 81.6 kg

DRUGS (3)
  1. CHANTIX [Suspect]
     Indication: SMOKING CESSATION THERAPY
     Dates: start: 20070816
  2. LEVAQUIN [Concomitant]
     Indication: BRONCHITIS
  3. COMBIVENT [Concomitant]
     Indication: BRONCHITIS

REACTIONS (5)
  - CHOKING [None]
  - COUGH [None]
  - MEDICATION ERROR [None]
  - RETCHING [None]
  - VOMITING [None]
